FAERS Safety Report 8789307 (Version 1)
Quarter: 2012Q4

REPORT INFORMATION
  Report Type: Spontaneous
  Country: None (occurrence: None)
  Receive Date: 20120905
  Receipt Date: 20120905
  Transmission Date: 20130627
  Serious: Yes (Other)
  Sender: FDA-Public Use
  Company Number: AUR-APL-2012-03620

PATIENT
  Age: 63 Year
  Sex: Male
  Weight: 91 kg

DRUGS (18)
  1. METFORMIN (METFORMIN) [Suspect]
     Indication: DRUG USE FOR UNKNOWN INDICATION
     Dates: start: 20120424
  2. ALLOPURINOL [Concomitant]
  3. AMITRIPTYLINE HYDROCHLORIDE [Concomitant]
  4. AMLODIPINE [Concomitant]
  5. CETIRIZINE [Concomitant]
  6. CO-CODAMOL (PANADEINE CO) [Concomitant]
  7. DOXAZOSIN (DOXAZOSIN MESILATE) [Concomitant]
  8. DOXYCYCLINE [Concomitant]
  9. GAVISCON [Concomitant]
  10. GLICLAZIDE [Concomitant]
  11. GLYCERYL TRINITRATE [Concomitant]
  12. MOMETASONE FUROATE [Concomitant]
  13. OMEPRAZOLE [Concomitant]
  14. PERINDOPRIL ERBUMINE [Concomitant]
  15. SALBUTAMOL [Concomitant]
  16. SERETIDE [Concomitant]
  17. SIMVASTATIN [Concomitant]
  18. TIOTROPIUM [Concomitant]

REACTIONS (1)
  - Hypersensitivity [None]
